FAERS Safety Report 4808281-7 (Version None)
Quarter: 2005Q4

REPORT INFORMATION
  Report Type: 
  Country: None (occurrence: None)
  Receive Date: 20051021
  Receipt Date: 20051021
  Transmission Date: 20060501
  Serious: Yes (Life-Threatening, Hospitalization, Disabling)
  Sender: FDA-Public Use
  Company Number: None

PATIENT
  Age: 30 Year
  Sex: Female
  Weight: 113.3993 kg

DRUGS (1)
  1. REMICADE [Suspect]
     Indication: CROHN'S DISEASE
     Dates: start: 20050801, end: 20050801

REACTIONS (6)
  - COMA [None]
  - NERVOUS SYSTEM DISORDER [None]
  - ORGAN FAILURE [None]
  - PULMONARY OEDEMA [None]
  - SEPSIS [None]
  - SEPTIC SHOCK [None]
